FAERS Safety Report 8100068 (Version 3)
Quarter: 2012Q4

REPORT INFORMATION
  Report Type: Spontaneous
  Country: JP (occurrence: None)
  Receive Date: 20110812
  Receipt Date: 20120529
  Transmission Date: 20130627
  Serious: Yes (Other)
  Sender: FDA-Public Use
  Company Number: JP-2011-10891

PATIENT
  Age: 90 Year
  Sex: Male

DRUGS (7)
  1. SAMSCA [Suspect]
     Indication: CARDIAC FAILURE CONGESTIVE
     Dosage: 7.5 MG MILLIGRAM(S), QD, ORAL
     Route: 048
     Dates: start: 20110525, end: 20110601
  2. LASIX (FUROSEMIDE SODIUM)INJECTION [Concomitant]
  3. LASIX (FUROSEMIDE) TABLE [Concomitant]
  4. ITOROL (ISOSORBIDE MONONITRATE) TABLET [Concomitant]
  5. GASTER [Concomitant]
  6. HARNAL [Concomitant]
  7. MAGMITT (MAGNESIUM OXIDE) TABLET [Concomitant]

REACTIONS (8)
  - Hypernatraemia [None]
  - Thirst [None]
  - Fluid intake reduced [None]
  - Choking [None]
  - Blood urea increased [None]
  - Nasopharyngitis [None]
  - Blood creatinine increased [None]
  - Blood potassium increased [None]
